APPROVED DRUG PRODUCT: BUSPIRONE HYDROCHLORIDE
Active Ingredient: BUSPIRONE HYDROCHLORIDE
Strength: 30MG
Dosage Form/Route: TABLET;ORAL
Application: A075022 | Product #004 | TE Code: AB
Applicant: TEVA PHARMACEUTICALS USA INC
Approved: Mar 25, 2004 | RLD: No | RS: No | Type: RX